FAERS Safety Report 7078801-3 (Version None)
Quarter: 2010Q4

REPORT INFORMATION
  Report Type: 
  Country: None (occurrence: None)
  Receive Date: 20101102
  Receipt Date: 20101025
  Transmission Date: 20110411
  Serious: Yes (Other)
  Sender: FDA-Public Use
  Company Number: US-PFIZER INC-2010136216

PATIENT
  Sex: Female
  Weight: 81.633 kg

DRUGS (2)
  1. TOVIAZ [Suspect]
     Indication: POLLAKIURIA
     Dosage: 8 MG, DAILY
     Route: 048
     Dates: start: 20101019, end: 20101022
  2. NORVASC [Concomitant]
     Dosage: 2.5 MG, UNK

REACTIONS (9)
  - DRY MOUTH [None]
  - EYE IRRITATION [None]
  - GAIT DISTURBANCE [None]
  - MUSCULOSKELETAL DISCOMFORT [None]
  - OEDEMA PERIPHERAL [None]
  - RENAL IMPAIRMENT [None]
  - SLEEP DISORDER [None]
  - URINE OUTPUT DECREASED [None]
  - VISUAL IMPAIRMENT [None]
